FAERS Safety Report 5244010-3 (Version None)
Quarter: 2007Q1

REPORT INFORMATION
  Report Type: 
  Country: None (occurrence: None)
  Receive Date: 20070222
  Receipt Date: 20070215
  Transmission Date: 20070707
  Serious: Yes (Other)
  Sender: FDA-Public Use
  Company Number: US-JNJFOC-20070204188

PATIENT
  Sex: Female
  Weight: 68.04 kg

DRUGS (7)
  1. FENTANYL TRANSDERMAL SYSTEM [Suspect]
     Indication: PAIN
     Route: 062
  2. LORTAB [Concomitant]
     Indication: PAIN
     Route: 048
  3. VALIUM [Concomitant]
     Indication: NEUROSIS
     Route: 048
  4. FLEXERIL [Concomitant]
     Indication: MUSCLE RELAXANT THERAPY
     Route: 048
  5. WELLBUTRIN [Concomitant]
     Indication: DEPRESSION
     Route: 048
  6. VICODIN [Concomitant]
     Indication: PAIN
     Route: 048
  7. ZOCOR [Concomitant]
     Indication: BLOOD CHOLESTEROL
     Route: 048

REACTIONS (8)
  - APPLICATION SITE BRUISING [None]
  - APPLICATION SITE PRURITUS [None]
  - APPLICATION SITE RASH [None]
  - APPLICATION SITE SWELLING [None]
  - APPLICATION SITE VESICLES [None]
  - CYSTITIS [None]
  - DRUG INEFFECTIVE [None]
  - WEIGHT DECREASED [None]
